FAERS Safety Report 15492007 (Version 2)
Quarter: 2018Q4

REPORT INFORMATION
  Report Type: Spontaneous
  Country: ES (occurrence: ES)
  Receive Date: 20181012
  Receipt Date: 20181019
  Transmission Date: 20190205
  Serious: Yes (Hospitalization, Other)
  Sender: FDA-Public Use
  Company Number: ES-AUROBINDO-AUR-APL-2018-050485

PATIENT
  Age: 48 Year
  Sex: Male

DRUGS (8)
  1. LEVODOPA/CARBIDOPA [Suspect]
     Active Substance: CARBIDOPA\LEVODOPA
     Indication: PARKINSON^S DISEASE
     Dosage: 300 MILLIGRAM, ONCE A DAY
     Route: 048
  2. ROPINIROLE. [Suspect]
     Active Substance: ROPINIROLE
     Indication: PARKINSON^S DISEASE
     Dosage: 20 MILLIGRAM, ONCE A DAY
     Route: 065
  3. ENTACAPON [Suspect]
     Active Substance: ENTACAPONE
     Dosage: 1000 MG QD (1)
  4. MANTIDAN [Suspect]
     Active Substance: AMANTADINE HYDROCHLORIDE
     Indication: PARKINSON^S DISEASE
     Dosage: 200 MILLIGRAM, ONCE A DAY
     Route: 065
  5. ENTACAPON [Suspect]
     Active Substance: ENTACAPONE
     Dosage: 1000 MG, QD
     Route: 065
  6. PERGOLIDE [Suspect]
     Active Substance: PERGOLIDE
     Indication: PARKINSON^S DISEASE
     Dosage: UNK
     Route: 065
  7. ENTACAPON [Suspect]
     Active Substance: ENTACAPONE
     Indication: PARKINSON^S DISEASE
     Dosage: 1000 MILLIGRAM, ONCE A DAY
     Route: 065
  8. SELEGILINE [Suspect]
     Active Substance: SELEGILINE
     Indication: PARKINSON^S DISEASE
     Dosage: 10 MG, QD
     Route: 065

REACTIONS (4)
  - Hypersexuality [Recovered/Resolved]
  - Drug abuse [Recovered/Resolved]
  - Gambling disorder [Recovered/Resolved]
  - Dopamine dysregulation syndrome [Recovered/Resolved]
